FAERS Safety Report 23670111 (Version 4)
Quarter: 2024Q4

REPORT INFORMATION
  Report Type: Spontaneous
  Country: US (occurrence: US)
  Receive Date: 20240325
  Receipt Date: 20241231
  Transmission Date: 20250115
  Serious: Yes (Hospitalization)
  Sender: PFIZER
  Company Number: US-PFIZER INC-PV202300205000

PATIENT
  Age: 73 Year
  Sex: Female

DRUGS (2)
  1. IBRANCE [Suspect]
     Active Substance: PALBOCICLIB
     Indication: Breast cancer female
     Dosage: TAKE 1 TAB (125 MG) ONCE A DAY FOR 21 DAYS FOLLOWED BY 7 DAYS OFF. REPEAT EVERY 28 DAYS
     Route: 048
  2. IBRANCE [Suspect]
     Active Substance: PALBOCICLIB
     Dosage: 125 MG, (TAKE 1 TABLET ONCE DAILY FOR 21 DAYS FOLLOWED BY 7 DAYS OFF. REPEAT EVERY 25 DAYS)
     Route: 048

REACTIONS (5)
  - Back pain [Unknown]
  - Neoplasm recurrence [Unknown]
  - White blood cell count decreased [Unknown]
  - Gastrooesophageal reflux disease [Unknown]
  - Hernia [Unknown]
